FAERS Safety Report 25729892 (Version 2)
Quarter: 2025Q4

REPORT INFORMATION
  Report Type: Report from Study
  Country: US (occurrence: US)
  Receive Date: 20250827
  Receipt Date: 20251126
  Transmission Date: 20260118
  Serious: Yes (Other)
  Sender: JAZZ
  Company Number: US-JAZZ PHARMACEUTICALS-2025-US-007023

PATIENT
  Age: 70 Year
  Sex: Female

DRUGS (10)
  1. XYREM [Suspect]
     Active Substance: SODIUM OXYBATE
     Indication: Fibromyalgia
     Dosage: 2 GRAM, BID
  2. XYREM [Suspect]
     Active Substance: SODIUM OXYBATE
     Indication: Hypersomnia
     Dosage: 2 GRAM, TID
  3. XYREM [Suspect]
     Active Substance: SODIUM OXYBATE
     Dosage: 6 GRAM
  4. XYREM [Suspect]
     Active Substance: SODIUM OXYBATE
     Dosage: UNK
  5. HYDROCORTISONE [Concomitant]
     Active Substance: HYDROCORTISONE
     Indication: Product used for unknown indication
     Dosage: UNK
  6. EPSOM SALT [Concomitant]
     Active Substance: MAGNESIUM SULFATE
     Indication: Product used for unknown indication
     Dosage: UNK
  7. ESTRADIOL [Concomitant]
     Active Substance: ESTRADIOL
     Indication: Product used for unknown indication
     Dosage: UNK
  8. VITAMIN D3 [Concomitant]
     Active Substance: CHOLECALCIFEROL
     Indication: Product used for unknown indication
     Dosage: 3000 UNIT
  9. HYDROCORTISONE ACETATE [Concomitant]
     Active Substance: HYDROCORTISONE ACETATE
     Indication: Product used for unknown indication
  10. PECTIN [Concomitant]
     Active Substance: PECTIN
     Indication: Product used for unknown indication

REACTIONS (15)
  - Myocardial injury [Recovered/Resolved]
  - Blood pressure increased [Unknown]
  - Sports injury [Unknown]
  - Stress [Unknown]
  - Asthma exercise induced [Unknown]
  - Insomnia [Unknown]
  - Smoke sensitivity [Unknown]
  - Feeling abnormal [Unknown]
  - Nervousness [Unknown]
  - Dyspnoea [Unknown]
  - Chest discomfort [Unknown]
  - Unevaluable event [Unknown]
  - Product administration interrupted [Unknown]
  - Therapeutic product effect decreased [Unknown]
  - Intentional product use issue [Unknown]

NARRATIVE: CASE EVENT DATE: 20241201
